FAERS Safety Report 9983935 (Version 2)
Quarter: 2014Q1

REPORT INFORMATION
  Report Type: Report from Study
  Country: PR (occurrence: PR)
  Receive Date: 20140307
  Receipt Date: 20140307
  Transmission Date: 20141002
  Serious: No
  Sender: FDA-Public Use
  Company Number: PR-ABBVIE-13P-131-1172846-00

PATIENT
  Age: 51 Year
  Sex: Male
  Weight: 101.7 kg

DRUGS (6)
  1. HUMIRA [Suspect]
     Indication: COLITIS ULCERATIVE
     Route: 058
     Dates: start: 20121129, end: 20131119
  2. PROTONIX [Concomitant]
     Indication: GASTRITIS
     Route: 048
     Dates: start: 1999
  3. DELZICOL [Concomitant]
     Indication: PRODUCT USED FOR UNKNOWN INDICATION
     Route: 048
     Dates: start: 1999, end: 201305
  4. FOLIC ACID [Concomitant]
     Indication: PRODUCT USED FOR UNKNOWN INDICATION
     Route: 048
     Dates: start: 1999
  5. ANUSOL SUPPOSITORY [Concomitant]
     Indication: HAEMORRHOIDAL HAEMORRHAGE
  6. ANUSOL CREAM [Concomitant]
     Indication: HAEMORRHOIDAL HAEMORRHAGE

REACTIONS (7)
  - Malaise [Not Recovered/Not Resolved]
  - Fatigue [Recovered/Resolved]
  - Drug ineffective [Unknown]
  - Dermatitis [Unknown]
  - Alopecia [Unknown]
  - Weight decreased [Unknown]
  - Dermatitis [Unknown]
